FAERS Safety Report 5892552-X (Version None)
Quarter: 2008Q3

REPORT INFORMATION
  Report Type: 
  Country: None (occurrence: None)
  Receive Date: 20080923
  Receipt Date: 20080912
  Transmission Date: 20090109
  Serious: Yes (Life-Threatening, Hospitalization, Disabling)
  Sender: FDA-Public Use
  Company Number: JP-ELI_LILLY_AND_COMPANY-JP200807000313

PATIENT
  Sex: Male
  Weight: 64 kg

DRUGS (9)
  1. GEMZAR [Suspect]
     Indication: PANCREATIC CARCINOMA STAGE III
     Dosage: 1000 MG, OTHER
     Route: 042
     Dates: start: 20070823, end: 20070905
  2. GEMZAR [Suspect]
     Dosage: 1000 MG, OTHER
     Route: 042
     Dates: start: 20070919, end: 20080528
  3. NAUZELIN [Concomitant]
     Dosage: 10 MG, 3/D
     Route: 048
     Dates: start: 20070819
  4. ADALAT CR /SCH/ [Concomitant]
     Dosage: 20 MG, DAILY (1/D)
     Route: 048
     Dates: start: 20070818
  5. DIOVAN [Concomitant]
     Dosage: UNK, OTHER
     Route: 048
     Dates: start: 20070818
  6. RABEPRAZOLE SODIUM [Concomitant]
     Dosage: 10 MG, DAILY (1/D)
     Route: 048
     Dates: start: 20070818
  7. URSO 250 [Concomitant]
     Dosage: 100 MG, 3/D
     Route: 048
     Dates: start: 20070818
  8. FOIPAN [Concomitant]
     Dosage: 100 MG, 3/D
     Route: 048
     Dates: start: 20070818
  9. TAURINE [Concomitant]
     Dosage: 1 D/F, 3/D
     Route: 048
     Dates: start: 20080514

REACTIONS (7)
  - HAEMOGLOBIN DECREASED [None]
  - HYPONATRAEMIA [None]
  - HYPOPROTEINAEMIA [None]
  - INTERSTITIAL LUNG DISEASE [None]
  - OEDEMA [None]
  - PLEURAL EFFUSION [None]
  - PLEURISY [None]
